FAERS Safety Report 26092607 (Version 1)
Quarter: 2025Q4

REPORT INFORMATION
  Report Type: Spontaneous
  Country: CA (occurrence: CA)
  Receive Date: 20251126
  Receipt Date: 20251126
  Transmission Date: 20260117
  Serious: Yes (Death, Life-Threatening, Other)
  Sender: ALKEM
  Company Number: None

PATIENT
  Age: 81 Year
  Sex: Male

DRUGS (14)
  1. AZATHIOPRINE [Suspect]
     Active Substance: AZATHIOPRINE
     Indication: Polymyalgia rheumatica
     Dosage: 150 MILLIGRAM, QD (EVERY 1 DAY)
     Route: 065
     Dates: start: 2021
  2. AZATHIOPRINE [Suspect]
     Active Substance: AZATHIOPRINE
     Indication: Autoinflammatory disease
  3. MYCOPHENOLATE MOFETIL [Suspect]
     Active Substance: MYCOPHENOLATE MOFETIL
     Indication: Polymyalgia rheumatica
     Dosage: 1.5 GRAM, BID (EVERY 12 HOUR)
     Route: 065
     Dates: start: 2021
  4. MYCOPHENOLATE MOFETIL [Suspect]
     Active Substance: MYCOPHENOLATE MOFETIL
     Indication: Autoinflammatory disease
  5. TOFACITINIB [Suspect]
     Active Substance: TOFACITINIB
     Indication: Polymyalgia rheumatica
     Dosage: 5 MILLIGRAM, BID (EVERY 12 HOUR) (TARGETED IMMUNOTHERAPY)
     Route: 065
     Dates: start: 2021
  6. TOFACITINIB [Suspect]
     Active Substance: TOFACITINIB
     Indication: Autoinflammatory disease
  7. CYCLOSPORINE [Suspect]
     Active Substance: CYCLOSPORINE
     Indication: Polymyalgia rheumatica
     Dosage: 2.5 MILLIGRAM/KILOGRAM, QD (EVERY 1 DAY)
     Route: 065
     Dates: start: 2021
  8. CYCLOSPORINE [Suspect]
     Active Substance: CYCLOSPORINE
     Indication: Autoinflammatory disease
  9. METHOTREXATE [Suspect]
     Active Substance: METHOTREXATE
     Indication: Polymyalgia rheumatica
     Dosage: 25 MILLIGRAM, ONCE WEEKLY (EVERY 1 WEEK)
     Route: 058
     Dates: start: 2021
  10. METHOTREXATE [Suspect]
     Active Substance: METHOTREXATE
     Indication: Autoinflammatory disease
  11. PREDNISONE [Suspect]
     Active Substance: PREDNISONE
     Indication: Polymyalgia rheumatica
     Dosage: 40 MILLIGRAM, QD (EVERY 1 DAY)
     Route: 065
     Dates: start: 2021
  12. PREDNISONE [Suspect]
     Active Substance: PREDNISONE
     Indication: Autoinflammatory disease
     Dosage: 15 MILLIGRAM, QD (EVERY 1 DAY)
     Route: 065
  13. SARILUMAB [Suspect]
     Active Substance: SARILUMAB
     Indication: Polymyalgia rheumatica
     Dosage: 200 MILLIGRAM, ONCE IN 2 WEEKS (EVERY 2 WEEK)
     Route: 058
     Dates: start: 2021
  14. SARILUMAB [Suspect]
     Active Substance: SARILUMAB
     Indication: Autoinflammatory disease

REACTIONS (6)
  - COVID-19 pneumonia [Fatal]
  - Pneumonia [Fatal]
  - Mycobacterium chelonae infection [Fatal]
  - Bacteraemia [Fatal]
  - Therapy partial responder [Unknown]
  - Drug ineffective [Unknown]
